FAERS Safety Report 9136532 (Version 1)
Quarter: 2013Q1

REPORT INFORMATION
  Report Type: Spontaneous
  Country: US (occurrence: US)
  Receive Date: 20130304
  Receipt Date: 20130304
  Transmission Date: 20140127
  Serious: Yes (Other)
  Sender: FDA-Public Use
  Company Number: US-PFIZER INC-2013073532

PATIENT
  Age: 18 Year
  Sex: Female
  Weight: 63.49 kg

DRUGS (6)
  1. LYRICA [Suspect]
     Indication: COMPLEX REGIONAL PAIN SYNDROME
     Dosage: 25 MG, 2X/DAY
     Dates: start: 201101
  2. LYRICA [Suspect]
     Dosage: 50 MG, 2X/DAY
  3. LYRICA [Suspect]
     Dosage: 75 MG, 2X/DAY
  4. LYRICA [Suspect]
     Dosage: 100 MG, 2X/DAY
  5. PERCOCET [Concomitant]
     Indication: COMPLEX REGIONAL PAIN SYNDROME
     Dosage: [OXYCODONE 5 MG]/ [ACETAMINOPHEN 325MG] AS NEEDED
  6. BACLOFEN [Concomitant]
     Indication: COMPLEX REGIONAL PAIN SYNDROME
     Dosage: 10 MG, 2X/DAY

REACTIONS (3)
  - Hypersensitivity [Recovered/Resolved]
  - Urticaria [Recovered/Resolved]
  - Dyspnoea [Recovered/Resolved]
